FAERS Safety Report 11518447 (Version 1)
Quarter: 2015Q3

REPORT INFORMATION
  Report Type: Spontaneous
  Country: AR (occurrence: AR)
  Receive Date: 20150917
  Receipt Date: 20150917
  Transmission Date: 20151125
  Serious: Yes (Other)
  Sender: FDA-Public Use
  Company Number: AR-JNJFOC-20150909649

PATIENT
  Age: 75 Year
  Sex: Female
  Weight: 75 kg

DRUGS (1)
  1. SIMPONI [Suspect]
     Active Substance: GOLIMUMAB
     Indication: RHEUMATOID ARTHRITIS
     Route: 058
     Dates: start: 20150627

REACTIONS (4)
  - Exostosis [Not Recovered/Not Resolved]
  - Keratitis [Not Recovered/Not Resolved]
  - Ulcerative keratitis [Not Recovered/Not Resolved]
  - Conjunctivitis [Not Recovered/Not Resolved]

NARRATIVE: CASE EVENT DATE: 201508
